FAERS Safety Report 6149813-9 (Version None)
Quarter: 2009Q2

REPORT INFORMATION
  Report Type: 
  Country: None (occurrence: None)
  Receive Date: 20090402
  Receipt Date: 20081005
  Transmission Date: 20091009
  Serious: Yes (Other)
  Sender: FDA-Public Use
  Company Number: 2008SU0240

PATIENT
  Sex: Male

DRUGS (1)
  1. SULAR [Suspect]
     Indication: HYPERTENSION
     Dosage: 17MG, QD
     Dates: start: 20081002

REACTIONS (2)
  - DRUG INEFFECTIVE [None]
  - HEADACHE [None]
